FAERS Safety Report 21987834 (Version 6)
Quarter: 2024Q3

REPORT INFORMATION
  Report Type: Spontaneous
  Country: US (occurrence: US)
  Receive Date: 20230214
  Receipt Date: 20240828
  Transmission Date: 20241017
  Serious: No
  Sender: LUPIN
  Company Number: US-LUPIN PHARMACEUTICALS INC.-2023-00855

PATIENT

DRUGS (3)
  1. ALBUTEROL SULFATE [Suspect]
     Active Substance: ALBUTEROL SULFATE
     Indication: Dyspnoea
     Dosage: 4 DOSAGE FORM, QD, 4 PUFFS A DAY
     Dates: start: 20230130
  2. ALBUTEROL SULFATE [Suspect]
     Active Substance: ALBUTEROL SULFATE
     Dosage: 4 DOSAGE FORM, QD, 4 PUFFS A DAY
     Dates: start: 20230203
  3. ALBUTEROL SULFATE [Suspect]
     Active Substance: ALBUTEROL SULFATE
     Dosage: 4 DOSAGE FORM, QD
     Dates: start: 20230221

REACTIONS (5)
  - Drug dose omission by device [Unknown]
  - Device delivery system issue [Unknown]
  - Device malfunction [Unknown]
  - Product use in unapproved indication [Unknown]
  - No adverse event [Unknown]
